FAERS Safety Report 7854008-4 (Version None)
Quarter: 2011Q4

REPORT INFORMATION
  Report Type: 
  Country: None (occurrence: None)
  Receive Date: 20111026
  Receipt Date: 20111020
  Transmission Date: 20120403
  Serious: No
  Sender: FDA-Public Use
  Company Number: US-PFIZER INC-2011254854

PATIENT
  Sex: Male

DRUGS (3)
  1. CARVEDILOL [Interacting]
  2. ARICEPT [Suspect]
  3. GLIPIZIDE [Interacting]

REACTIONS (2)
  - HYPERSOMNIA [None]
  - DRUG INTERACTION [None]
